FAERS Safety Report 6611163-1 (Version None)
Quarter: 2010Q1

REPORT INFORMATION
  Report Type: 
  Country: None (occurrence: None)
  Receive Date: 20100303
  Receipt Date: 20100219
  Transmission Date: 20100710
  Serious: Yes (Death)
  Sender: FDA-Public Use
  Company Number: US-RANBAXY-2010RR-31699

PATIENT
  Age: 53 Year
  Sex: Female

DRUGS (5)
  1. FUROSEMIDE [Suspect]
     Indication: DRUG USE FOR UNKNOWN INDICATION
     Route: 048
  2. METHADON HCL TAB [Suspect]
     Indication: DRUG USE FOR UNKNOWN INDICATION
     Route: 048
  3. POTASSIUM CHLORIDE [Suspect]
     Indication: DRUG USE FOR UNKNOWN INDICATION
     Route: 048
  4. BUTALBITAL/CAFFEIN/SALLICYLATE [Suspect]
     Indication: DRUG USE FOR UNKNOWN INDICATION
     Route: 048
  5. HYDROCODONE BITARTRATE AND ACETAMINOPHEN [Suspect]
     Indication: DRUG USE FOR UNKNOWN INDICATION
     Route: 048

REACTIONS (2)
  - CARDIO-RESPIRATORY ARREST [None]
  - DEATH [None]
